FAERS Safety Report 8315381-6 (Version None)
Quarter: 2012Q2

REPORT INFORMATION
  Report Type: 
  Country: None (occurrence: None)
  Receive Date: 20120426
  Receipt Date: 20120416
  Transmission Date: 20120825
  Serious: Yes (Death, Life-Threatening)
  Sender: FDA-Public Use
  Company Number: DE-BRISTOL-MYERS SQUIBB COMPANY-16529539

PATIENT
  Age: 68 Year
  Sex: Male
  Weight: 80 kg

DRUGS (4)
  1. SPIRONOLACTONE [Suspect]
  2. CEFTAZIDIME [Suspect]
     Dates: start: 20091101, end: 20091106
  3. MAXIPIME [Suspect]
     Dates: start: 20091030, end: 20091101
  4. VANCOMYCIN [Suspect]
     Dosage: INTERRUPTED:01NOV09 (38 DYS)
     Route: 048
     Dates: start: 20090925

REACTIONS (3)
  - SEPSIS [None]
  - MULTI-ORGAN FAILURE [None]
  - TOXIC EPIDERMAL NECROLYSIS [None]
